FAERS Safety Report 25393107 (Version 4)
Quarter: 2025Q3

REPORT INFORMATION
  Report Type: Spontaneous
  Country: EU (occurrence: EU)
  Receive Date: 20250604
  Receipt Date: 20250801
  Transmission Date: 20251021
  Serious: Yes (Hospitalization, Other)
  Sender: NOVARTIS
  Company Number: EU-002147023-NVSC2025HR085744

PATIENT
  Age: 39 Year
  Sex: Female

DRUGS (2)
  1. KISQALI [Suspect]
     Active Substance: RIBOCICLIB SUCCINATE
     Indication: Breast cancer metastatic
     Route: 048
     Dates: start: 20240902, end: 20241112
  2. Ibat [Concomitant]
     Indication: Product used for unknown indication
     Dosage: 50 MG, QD
     Route: 048
     Dates: start: 202409, end: 20241112

REACTIONS (5)
  - Jaundice [Unknown]
  - Nausea [Unknown]
  - Hepatic lesion [Recovering/Resolving]
  - Hepatotoxicity [Recovering/Resolving]
  - Hepatitis [Unknown]

NARRATIVE: CASE EVENT DATE: 20241112
